FAERS Safety Report 8014652 (Version 4)
Quarter: 2014Q3

REPORT INFORMATION
  Report Type: Spontaneous
  Country: US (occurrence: US)
  Receive Date: 20110629
  Receipt Date: 20140703
  Transmission Date: 20150326
  Serious: Yes (Hospitalization)
  Sender: FDA-Public Use
  Company Number: US-BAYER-2011-053229

PATIENT
  Age: 23 Year
  Sex: Female
  Weight: 83.9 kg

DRUGS (3)
  1. OCELLA [Suspect]
     Active Substance: DROSPIRENONE\ETHINYL ESTRADIOL
     Indication: CONTRACEPTION
     Dosage: UNK
     Dates: start: 200811, end: 200906
  2. OCELLA [Suspect]
     Active Substance: DROSPIRENONE\ETHINYL ESTRADIOL
     Indication: ACNE
  3. HYDROMORPHONE [Concomitant]
     Active Substance: HYDROMORPHONE
     Dosage: 2 MG, UNK
     Route: 048
     Dates: start: 20110611

REACTIONS (11)
  - Anxiety [None]
  - Injury [None]
  - Emotional distress [None]
  - Anhedonia [None]
  - Fear [None]
  - Deep vein thrombosis [None]
  - Deep vein thrombosis [Recovering/Resolving]
  - Vena cava thrombosis [Recovering/Resolving]
  - Pain [None]
  - Psychological trauma [None]
  - Pelvic venous thrombosis [Recovering/Resolving]

NARRATIVE: CASE EVENT DATE: 200906
